FAERS Safety Report 5747236-5 (Version None)
Quarter: 2008Q2

REPORT INFORMATION
  Report Type: 
  Country: None (occurrence: None)
  Receive Date: 20080520
  Receipt Date: 20080501
  Transmission Date: 20081010
  Serious: Yes (Other)
  Sender: FDA-Public Use
  Company Number: 2008PL000075

PATIENT
  Age: 28 Year
  Sex: Male

DRUGS (7)
  1. AZATHIOPRINE [Suspect]
     Indication: IMMUNOSUPPRESSANT DRUG THERAPY
     Dosage: 50 MG; QD; PO
     Route: 048
     Dates: start: 19980101
  2. TACROLIMUS [Suspect]
     Indication: IMMUNOSUPPRESSANT DRUG THERAPY
     Dosage: 6 MG;, 4 MG;, 2 MG;, 1 MG;
     Dates: start: 19980101
  3. TACROLIMUS [Suspect]
     Indication: IMMUNOSUPPRESSANT DRUG THERAPY
     Dosage: 6 MG;, 4 MG;, 2 MG;, 1 MG;
     Dates: start: 20031202
  4. PREDNISOLONE [Concomitant]
  5. METHYLPREDNISOLONE [Concomitant]
  6. SPARGARIN [Concomitant]
  7. MIZORIBINE [Concomitant]

REACTIONS (2)
  - KIDNEY TRANSPLANT REJECTION [None]
  - POLYOMAVIRUS-ASSOCIATED NEPHROPATHY [None]
